FAERS Safety Report 9502431 (Version 2)
Quarter: 2013Q4

REPORT INFORMATION
  Report Type: Spontaneous
  Country: MX (occurrence: MX)
  Receive Date: 20130906
  Receipt Date: 20131014
  Transmission Date: 20140711
  Serious: Yes (Hospitalization, Other)
  Sender: FDA-Public Use
  Company Number: MX-AMGEN-MEXSP2013061857

PATIENT
  Age: 74 Year
  Sex: Male
  Weight: 27.21 kg

DRUGS (2)
  1. NPLATE [Suspect]
     Indication: THROMBOCYTOPENIA
     Dosage: 3 MUG, QWK
     Route: 058
     Dates: start: 20130620
  2. PREDNISONE [Concomitant]

REACTIONS (4)
  - Pulmonary embolism [Recovered/Resolved]
  - Platelet count abnormal [Recovered/Resolved]
  - Tachycardia [Unknown]
  - Pleuritic pain [Unknown]
